FAERS Safety Report 5376572-X (Version None)
Quarter: 2007Q2

REPORT INFORMATION
  Report Type: 
  Country: None (occurrence: None)
  Receive Date: 20070629
  Receipt Date: 20070626
  Transmission Date: 20071010
  Serious: Yes (Life-Threatening)
  Sender: FDA-Public Use
  Company Number: 2007S1000122

PATIENT
  Age: 18 Day
  Sex: Female
  Weight: 0.8 kg

DRUGS (1)
  1. NITRIC OXIDE [Suspect]
     Indication: LUNG DISORDER
     Dosage: 5 PPM;CONT;INH
     Route: 055
     Dates: start: 20070519

REACTIONS (1)
  - PATENT DUCTUS ARTERIOSUS REPAIR [None]
